FAERS Safety Report 7875362-3 (Version None)
Quarter: 2011Q4

REPORT INFORMATION
  Report Type: 
  Country: None (occurrence: None)
  Receive Date: 20111031
  Receipt Date: 20111019
  Transmission Date: 20120403
  Serious: Yes (Hospitalization, Congenital Anomaly)
  Sender: FDA-Public Use
  Company Number: US-GLAXOSMITHKLINE-A0951258A

PATIENT
  Sex: Female

DRUGS (3)
  1. VITAMIN B6 [Concomitant]
     Dates: start: 20040127
  2. MULTI-VITAMINS [Concomitant]
  3. PAXIL CR [Suspect]
     Indication: ANXIETY
     Dosage: 12.5MG PER DAY
     Route: 064

REACTIONS (5)
  - CEREBRAL PALSY [None]
  - PORENCEPHALY [None]
  - CONVULSION [None]
  - MATERNAL EXPOSURE DURING PREGNANCY [None]
  - NEURAL TUBE DEFECT [None]
